FAERS Safety Report 7062378-2 (Version None)
Quarter: 2010Q4

REPORT INFORMATION
  Report Type: 
  Country: None (occurrence: None)
  Receive Date: 20101026
  Receipt Date: 20101013
  Transmission Date: 20110411
  Serious: Yes (Hospitalization, Disabling)
  Sender: FDA-Public Use
  Company Number: CO-AMGEN-US441772

PATIENT

DRUGS (1)
  1. ETANERCEPT [Suspect]
     Indication: PSORIASIS
     Dosage: 50 MG, 2 TIMES/WK
     Route: 058
     Dates: start: 20090301

REACTIONS (4)
  - CONDITION AGGRAVATED [None]
  - FACIAL NERVE DISORDER [None]
  - PAIN [None]
  - SPEECH DISORDER [None]
